FAERS Safety Report 9967965 (Version 1)
Quarter: 2014Q1

REPORT INFORMATION
  Report Type: Report from Study
  Country: US (occurrence: US)
  Receive Date: 20140306
  Receipt Date: 20140306
  Transmission Date: 20141002
  Serious: No
  Sender: FDA-Public Use
  Company Number: US-ABBVIE-13P-163-1141263-00

PATIENT
  Age: 74 Year
  Sex: Female
  Weight: 75.82 kg

DRUGS (11)
  1. HUMIRA [Suspect]
     Indication: CROHN^S DISEASE
     Dates: start: 2011, end: 201211
  2. HUMIRA [Suspect]
     Dates: start: 201212, end: 20130805
  3. HUMIRA [Suspect]
     Dates: start: 201308
  4. OMEPRAZOLE [Concomitant]
     Indication: CROHN^S DISEASE
  5. MERCAPTOPURINE [Concomitant]
     Indication: CROHN^S DISEASE
  6. NORTRIPTYLINE [Concomitant]
     Indication: FIBROMYALGIA
  7. ASACOL [Concomitant]
     Indication: CROHN^S DISEASE
  8. MULTIVITAMIN [Concomitant]
     Indication: VITAMIN SUPPLEMENTATION
  9. FISH OIL [Concomitant]
     Indication: NUTRITIONAL SUPPLEMENTATION
  10. CALCIUM [Concomitant]
     Indication: MINERAL SUPPLEMENTATION
  11. IRON [Concomitant]
     Indication: IRON DEFICIENCY

REACTIONS (1)
  - Abdominal pain upper [Not Recovered/Not Resolved]
